FAERS Safety Report 11431828 (Version 1)
Quarter: 2015Q3

REPORT INFORMATION
  Report Type: Spontaneous
  Country: US (occurrence: US)
  Receive Date: 20150828
  Receipt Date: 20150828
  Transmission Date: 20151125
  Serious: No
  Sender: FDA-Public Use
  Company Number: US-SEBELA IRELAND LIMITED-2014SEB00082

PATIENT
  Sex: Female

DRUGS (12)
  1. ADVAIR DISKUS [Suspect]
     Active Substance: FLUTICASONE PROPIONATE\SALMETEROL XINAFOATE
  2. CARVEDILOL. [Concomitant]
     Active Substance: CARVEDILOL
  3. GLYBURIDE (GLIBENCLAMIDE) [Concomitant]
     Active Substance: GLYBURIDE
  4. FLUTICASONE [Concomitant]
     Active Substance: FLUTICASONE\FLUTICASONE PROPIONATE
  5. SOLARAZE (DICLOFENAC SODIUM) GEL [Concomitant]
  6. CALCITONIN-SALMON [Suspect]
     Active Substance: CALCITONIN SALMON
  7. PRAVASTATIN [Suspect]
     Active Substance: PRAVASTATIN\PRAVASTATIN SODIUM
  8. GABAPENTIN. [Suspect]
     Active Substance: GABAPENTIN
  9. CLONIDINE. [Concomitant]
     Active Substance: CLONIDINE
  10. FUROSEMIDE. [Suspect]
     Active Substance: FUROSEMIDE
  11. LOSARTAN. [Suspect]
     Active Substance: LOSARTAN
  12. KIONEX [Suspect]
     Active Substance: SODIUM POLYSTYRENE SULFONATE

REACTIONS (1)
  - Oropharyngeal pain [Unknown]
